FAERS Safety Report 5570408-X (Version None)
Quarter: 2007Q4

REPORT INFORMATION
  Report Type: 
  Country: None (occurrence: None)
  Receive Date: 20071221
  Receipt Date: 20071212
  Transmission Date: 20080405
  Serious: Yes (Hospitalization)
  Sender: FDA-Public Use
  Company Number: PHBS2007ES20811

PATIENT
  Age: 72 Year
  Sex: Female

DRUGS (3)
  1. STALEVO 100 [Suspect]
     Indication: PARKINSON'S DISEASE
     Dosage: UNK, BID
     Route: 048
     Dates: start: 20070621, end: 20070719
  2. ESERTIA [Suspect]
     Indication: DEPRESSION
     Dosage: 10 MG/D
     Route: 048
     Dates: start: 20060901, end: 20070801
  3. SINEMET [Suspect]
     Indication: PARKINSON'S DISEASE
     Dosage: UNK, QD
     Route: 048
     Dates: start: 20070625

REACTIONS (4)
  - AGGRESSION [None]
  - DELIRIUM [None]
  - DISORIENTATION [None]
  - PSYCHOMOTOR HYPERACTIVITY [None]
